FAERS Safety Report 8416289-8 (Version None)
Quarter: 2012Q2

REPORT INFORMATION
  Report Type: 
  Country: None (occurrence: None)
  Receive Date: 20120606
  Receipt Date: 20120522
  Transmission Date: 20120825
  Serious: Yes (Death, Other)
  Sender: FDA-Public Use
  Company Number: US-ROCHE-1072037

PATIENT

DRUGS (4)
  1. IRINOTECAN HYDROCHLORIDE [Suspect]
     Indication: GLIOBLASTOMA MULTIFORME
     Dosage: 125MG/M2 OR 340MG/M2 (IF ON EIAED)
  2. AVASTIN [Suspect]
     Indication: GLIOBLASTOMA MULTIFORME
  3. TEMOZOLOMIDE [Suspect]
     Indication: GLIOBLASTOMA MULTIFORME
  4. TEMOZOLOMIDE [Suspect]

REACTIONS (9)
  - PULMONARY EMBOLISM [None]
  - ACUTE MYELOID LEUKAEMIA [None]
  - PNEUMOCYSTIS JIROVECI PNEUMONIA [None]
  - MYOCARDIAL INFARCTION [None]
  - WOUND DEHISCENCE [None]
  - HAEMATOTOXICITY [None]
  - DEEP VEIN THROMBOSIS [None]
  - SEPSIS [None]
  - INTESTINAL PERFORATION [None]
